FAERS Safety Report 4736884-7 (Version None)
Quarter: 2005Q3

REPORT INFORMATION
  Report Type: 
  Country: None (occurrence: None)
  Receive Date: 20050808
  Receipt Date: 20050712
  Transmission Date: 20060218
  Serious: Yes (Other)
  Sender: FDA-Public Use
  Company Number: AU-GLAXOSMITHKLINE-B0387699A

PATIENT
  Age: 56 Year
  Sex: Female
  Weight: 84 kg

DRUGS (29)
  1. AVANDIA [Suspect]
     Indication: DRUG USE FOR UNKNOWN INDICATION
     Route: 048
  2. RISEDRONIC ACID [Concomitant]
     Dosage: 35MG WEEKLY
  3. GLIMEPIRIDE [Concomitant]
     Dosage: 1MG IN THE MORNING
  4. ASPIRIN [Concomitant]
     Dosage: 100MG PER DAY
  5. IPRATROPIUM BROMIDE [Concomitant]
     Dosage: 500MCG AS REQUIRED
  6. TERBUTALINE SULFATE [Concomitant]
     Dosage: 500MCG AS REQUIRED
  7. CALCIUM CARBONATE [Concomitant]
     Dosage: 600MG TWICE PER DAY
  8. CRANBERRY [Concomitant]
  9. DETROL [Concomitant]
     Dosage: 1TAB TWICE PER DAY
  10. MOMETASONE FUROATE [Concomitant]
  11. AMITRIPTYLINE HCL [Concomitant]
     Dosage: 25MG AT NIGHT
  12. METFORMIN HCL [Concomitant]
     Dosage: 500MG PER DAY
  13. NITRAZEPAM [Concomitant]
     Dosage: 5MG AT NIGHT
  14. MOMETASONE FUROATE [Concomitant]
  15. INDAPAMIDE [Concomitant]
     Dosage: 1TAB PER DAY
  16. AMLODIPINE [Concomitant]
     Dosage: 10MG PER DAY
  17. ESTRADIOL [Concomitant]
  18. RABEPRAZOLE SODIUM [Concomitant]
     Dosage: 20MG TWICE PER DAY
  19. PRAVASTATIN [Concomitant]
     Dosage: 40MG AT NIGHT
  20. PRODEINE [Concomitant]
     Dosage: 2TAB AS REQUIRED
  21. SCHERIPROCT [Concomitant]
  22. SERETIDE [Concomitant]
     Route: 055
  23. SERETIDE [Concomitant]
  24. MONTELUKAST SODIUM [Concomitant]
     Dosage: 10MG PER DAY
  25. NEDOCROMIL SODIUM [Concomitant]
     Dosage: 2PUFF FOUR TIMES PER DAY
     Route: 055
  26. TOLTERODINE [Concomitant]
     Dosage: 1MG TWICE PER DAY
  27. RAMIPRIL [Concomitant]
     Dosage: 10MG IN THE MORNING
  28. VENTOLIN [Concomitant]
     Dosage: 2MGML AS REQUIRED
  29. DICLOFENAC SODIUM [Concomitant]
     Dosage: 50MG THREE TIMES PER DAY

REACTIONS (5)
  - ALANINE AMINOTRANSFERASE INCREASED [None]
  - ASPARTATE AMINOTRANSFERASE INCREASED [None]
  - BLOOD LACTATE DEHYDROGENASE INCREASED [None]
  - GAMMA-GLUTAMYLTRANSFERASE INCREASED [None]
  - TRANSAMINASES INCREASED [None]
